FAERS Safety Report 5721935-3 (Version None)
Quarter: 2008Q2

REPORT INFORMATION
  Report Type: 
  Country: None (occurrence: None)
  Receive Date: 20080429
  Receipt Date: 20080417
  Transmission Date: 20081010
  Serious: Yes (Hospitalization)
  Sender: FDA-Public Use
  Company Number: CA-PFIZER INC-2008024437

PATIENT
  Age: 75 Year
  Sex: Male
  Weight: 102 kg

DRUGS (13)
  1. DEPO-MEDROL [Suspect]
     Indication: COLITIS ULCERATIVE
     Route: 054
     Dates: start: 20080306, end: 20080312
  2. PREDNISONE [Concomitant]
  3. FINASTERIDE [Concomitant]
  4. TERAZOSIN HCL [Concomitant]
  5. GRAVOL TAB [Concomitant]
  6. HEPARIN [Concomitant]
  7. ATROVENT [Concomitant]
  8. ADVAIR HFA [Concomitant]
  9. SPIRIVA [Concomitant]
  10. ALBUTEROL [Concomitant]
  11. RABEPRAZOLE SODIUM [Concomitant]
  12. INFLIXIMAB [Concomitant]
  13. TYLENOL W/ CODEINE NO. 3 [Concomitant]

REACTIONS (4)
  - AGITATION [None]
  - CONFUSIONAL STATE [None]
  - ESCHERICHIA INFECTION [None]
  - PYREXIA [None]
